FAERS Safety Report 25759304 (Version 1)
Quarter: 2025Q3

REPORT INFORMATION
  Report Type: Spontaneous
  Country: EU (occurrence: EU)
  Receive Date: 20250904
  Receipt Date: 20250904
  Transmission Date: 20251021
  Serious: Yes (Other)
  Sender: AMGEN
  Company Number: EU-009507513-2289278

PATIENT
  Age: 48 Year
  Sex: Female

DRUGS (4)
  1. BEVACIZUMAB [Suspect]
     Active Substance: BEVACIZUMAB
     Indication: Adenocarcinoma of appendix
     Route: 065
     Dates: start: 20230510, end: 20240119
  2. PEMBROLIZUMAB [Suspect]
     Active Substance: PEMBROLIZUMAB
     Indication: Adenocarcinoma of appendix
     Route: 065
     Dates: start: 20240226
  3. FLUOROURACIL\LEUCOVORIN CALCIUM\OXALIPLATIN [Suspect]
     Active Substance: FLUOROURACIL\LEUCOVORIN CALCIUM\OXALIPLATIN
     Indication: Adenocarcinoma of appendix
     Route: 065
     Dates: end: 202302
  4. FLUOROURACIL\IRINOTECAN\LEUCOVORIN [Suspect]
     Active Substance: FLUOROURACIL\IRINOTECAN\LEUCOVORIN
     Indication: Adenocarcinoma of appendix
     Route: 065
     Dates: start: 20230510, end: 20240119

REACTIONS (2)
  - Lung adenocarcinoma [Unknown]
  - Off label use [Unknown]

NARRATIVE: CASE EVENT DATE: 20241001
